FAERS Safety Report 6645038-9 (Version None)
Quarter: 2010Q1

REPORT INFORMATION
  Report Type: 
  Country: None (occurrence: None)
  Receive Date: 20100322
  Receipt Date: 20100318
  Transmission Date: 20100710
  Serious: Yes (Death, Other)
  Sender: FDA-Public Use
  Company Number: PHHY2010JP14150

PATIENT
  Age: 67 Year
  Sex: Female

DRUGS (2)
  1. IMATINIB MESYLATE [Suspect]
     Indication: ACUTE LEUKAEMIA
  2. CHEMOTHERAPEUTICS NOS [Concomitant]

REACTIONS (6)
  - ECTHYMA [None]
  - FEBRILE NEUTROPENIA [None]
  - PERIORBITAL OEDEMA [None]
  - PSEUDOMONAS INFECTION [None]
  - SEPTIC SHOCK [None]
  - SKIN LESION [None]
